FAERS Safety Report 15451256 (Version 1)
Quarter: 2018Q4

REPORT INFORMATION
  Report Type: Report from Study
  Country: BR (occurrence: BR)
  Receive Date: 20181001
  Receipt Date: 20181001
  Transmission Date: 20190204
  Serious: Yes (Death)
  Sender: FDA-Public Use
  Company Number: PHHY2018BR107662

PATIENT
  Age: 0 Day

DRUGS (1)
  1. EXJADE [Suspect]
     Active Substance: DEFERASIROX
     Indication: SICKLE CELL ANAEMIA
     Dosage: 1500 MG, QD
     Route: 064
     Dates: start: 2013

REACTIONS (2)
  - Premature baby [Unknown]
  - Premature baby death [Fatal]

NARRATIVE: CASE EVENT DATE: 20130930
